FAERS Safety Report 15856920 (Version 5)
Quarter: 2022Q2

REPORT INFORMATION
  Report Type: Spontaneous
  Country: GB (occurrence: GB)
  Receive Date: 20190123
  Receipt Date: 20220409
  Transmission Date: 20220720
  Serious: Yes (Other)
  Sender: FDA-Public Use
  Company Number: GB-MYLANLABS-2019M1001004

PATIENT
  Sex: Male

DRUGS (18)
  1. OLANZAPINE [Suspect]
     Active Substance: OLANZAPINE
     Indication: Schizophrenia
     Dosage: EVERY NIGHT
     Route: 065
  2. OLANZAPINE [Suspect]
     Active Substance: OLANZAPINE
     Route: 065
  3. CLONAZEPAM [Suspect]
     Active Substance: CLONAZEPAM
     Indication: Schizophrenia
     Dosage: EVERY NIGHT
     Route: 065
  4. CLONAZEPAM [Suspect]
     Active Substance: CLONAZEPAM
     Route: 065
  5. CLONAZEPAM [Suspect]
     Active Substance: CLONAZEPAM
     Route: 065
  6. CLONAZEPAM [Suspect]
     Active Substance: CLONAZEPAM
     Dosage: 0.5 MILLIGRAM, ONCE A DAY ( PM)
     Route: 065
  7. VALPROATE SODIUM [Suspect]
     Active Substance: VALPROATE SODIUM
     Indication: Schizophrenia
     Dosage: 700 MG EVERY NIGHT
     Route: 065
  8. VALPROATE SODIUM [Suspect]
     Active Substance: VALPROATE SODIUM
     Dosage: 500 MG EVERY MORNING
     Route: 065
  9. VALPROATE SODIUM [Suspect]
     Active Substance: VALPROATE SODIUM
     Route: 065
  10. VALPROATE SODIUM [Suspect]
     Active Substance: VALPROATE SODIUM
     Dosage: 700 MILLIGRAM, QD
     Route: 065
  11. VALPROATE SODIUM [Suspect]
     Active Substance: VALPROATE SODIUM
     Dosage: 700 MILLIGRAM, PM (700 MG, QD (700 MILLIGRAM, PM (12 HRS) )
     Route: 065
  12. VALPROATE SODIUM [Suspect]
     Active Substance: VALPROATE SODIUM
     Dosage: 500 MILLIGRAM, AM (500 MILLIGRAM, AM ((12 HRS)) )
     Route: 065
  13. VALPROATE SODIUM [Suspect]
     Active Substance: VALPROATE SODIUM
     Dosage: 700 MILLIGRAM, HS (700 MG, ONCE PER DAY( EVERY NIGHT) )
     Route: 065
  14. VALPROATE SODIUM [Suspect]
     Active Substance: VALPROATE SODIUM
     Dosage: UNK, 500MG OM 700MG ON
     Route: 065
  15. FLUPENTIXOL [Suspect]
     Active Substance: FLUPENTIXOL
     Indication: Schizophrenia
     Route: 065
  16. FLUPENTIXOL [Suspect]
     Active Substance: FLUPENTIXOL
     Dosage: 200 MILLIGRAM, Q2W(200 MILLIGRAM, 0.5 WEEK, EVERY 2 WEEKS)
     Route: 065
  17. CODEINE [Suspect]
     Active Substance: CODEINE
     Indication: Schizophrenia
     Route: 065
  18. CODEINE [Suspect]
     Active Substance: CODEINE
     Route: 065

REACTIONS (1)
  - Neutropenia [Recovered/Resolved]

NARRATIVE: CASE EVENT DATE: 20180809
